FAERS Safety Report 14096556 (Version 1)
Quarter: 2017Q4

REPORT INFORMATION
  Report Type: Other
  Country: US (occurrence: US)
  Receive Date: 20171017
  Receipt Date: 20171017
  Transmission Date: 20180321
  Serious: Yes (Other)
  Sender: FDA-Public Use
  Company Number: US-VELOXIS PHARMACEUTICALS-2030274

PATIENT
  Age: 24 Month
  Sex: Female

DRUGS (2)
  1. ENVARSUS XR [Suspect]
     Active Substance: TACROLIMUS
     Indication: LIVER TRANSPLANT
     Route: 065
  2. CYCLOSPORINE. [Suspect]
     Active Substance: CYCLOSPORINE

REACTIONS (4)
  - Intentional product use issue [Unknown]
  - Thrombocytopenia [Unknown]
  - Autoimmune haemolytic anaemia [Recovered/Resolved]
  - Aplasia pure red cell [Recovered/Resolved]
